FAERS Safety Report 23555813 (Version 2)
Quarter: 2024Q3

REPORT INFORMATION
  Report Type: Spontaneous
  Country: US (occurrence: US)
  Receive Date: 20240222
  Receipt Date: 20240925
  Transmission Date: 20241016
  Serious: Yes (Other)
  Sender: CSL BEHRING
  Company Number: US-BEH-2024168546

PATIENT
  Sex: Male

DRUGS (5)
  1. PRIVIGEN [Suspect]
     Active Substance: HUMAN IMMUNOGLOBULIN G
     Indication: Polyneuropathy
     Dosage: 50 GRAM, DAILY FOR 2 DAYS ON WEEK 1
     Route: 042
     Dates: start: 202311
  2. PRIVIGEN [Suspect]
     Active Substance: HUMAN IMMUNOGLOBULIN G
     Dosage: 50 GRAM, DAILY FOR 2 DAYS ON WEEK 2
     Route: 042
     Dates: start: 202311
  3. DIPHENHYDRAMINE [Concomitant]
     Active Substance: DIPHENHYDRAMINE
     Indication: Hypersensitivity
  4. TORADOL [Concomitant]
     Active Substance: KETOROLAC TROMETHAMINE
  5. ZOFRAN [Concomitant]
     Active Substance: ONDANSETRON HYDROCHLORIDE

REACTIONS (4)
  - Pneumonia [Unknown]
  - Constipation [Unknown]
  - Abdominal pain [Unknown]
  - Illness [Unknown]
